FAERS Safety Report 20102677 (Version 3)
Quarter: 2021Q4

REPORT INFORMATION
  Report Type: Other
  Country: LB (occurrence: LB)
  Receive Date: 20211123
  Receipt Date: 20211231
  Transmission Date: 20220303
  Serious: Yes (Other)
  Sender: FDA-Public Use
  Company Number: LB-002147023-NVSC2021LB260698

PATIENT
  Age: 62 Year
  Sex: Male
  Weight: 70 kg

DRUGS (6)
  1. LUCENTIS [Suspect]
     Active Substance: RANIBIZUMAB
     Indication: Diabetic retinal oedema
     Dosage: 20 MG/ML
     Route: 031
  2. LUCENTIS [Suspect]
     Active Substance: RANIBIZUMAB
     Dosage: 20 MG/ML
     Route: 031
  3. LUCENTIS [Suspect]
     Active Substance: RANIBIZUMAB
     Dosage: 20 MG/ML
     Route: 031
  4. LUCENTIS [Suspect]
     Active Substance: RANIBIZUMAB
     Dosage: 20 MG/ML
     Route: 031
  5. LUCENTIS [Suspect]
     Active Substance: RANIBIZUMAB
     Dosage: 20 MG/ML
     Route: 031
  6. LUCENTIS [Suspect]
     Active Substance: RANIBIZUMAB
     Dosage: 20 MG/ML
     Route: 031
     Dates: end: 202108

REACTIONS (3)
  - Blindness [Not Recovered/Not Resolved]
  - Product availability issue [Unknown]
  - Drug ineffective [Unknown]

NARRATIVE: CASE EVENT DATE: 20211022
